FAERS Safety Report 4613349-4 (Version None)
Quarter: 2005Q1

REPORT INFORMATION
  Report Type: 
  Country: None (occurrence: None)
  Receive Date: 20050316
  Receipt Date: 20050303
  Transmission Date: 20050727
  Serious: Yes (Life-Threatening)
  Sender: FDA-Public Use
  Company Number: 2005041503

PATIENT
  Age: 58 Year
  Sex: Male
  Weight: 79 kg

DRUGS (7)
  1. PREDNISONE TAB [Suspect]
     Indication: NON-HODGKIN'S LYMPHOMA
     Dosage: 60 MG, ORAL
     Route: 048
     Dates: start: 20030214, end: 20030620
  2. LIPOSOMAL FORMULATION OF DOXORUBICIN (LIPOSOMAL FORMULATION OF DOXORUB [Suspect]
     Indication: NON-HODGKIN'S LYMPHOMA
     Dosage: 90 MG (CYCLICAL), INTRAVENOUS
     Route: 042
     Dates: start: 20030214, end: 20030616
  3. CYCLOPHOSPHAMIDE [Suspect]
     Indication: NON-HODGKIN'S LYMPHOMA
     Dosage: 1400 MG (CYCLICAL), INTRAVENOUS
     Route: 042
     Dates: start: 20030214, end: 20030616
  4. VINCRISTINE [Suspect]
     Indication: NON-HODGKIN'S LYMPHOMA
     Dosage: 2 MG (CYCLICAL), INTRAVENOUS
     Route: 042
     Dates: start: 20030214, end: 20030616
  5. RITUXIMAB (RITUXIMAB) [Suspect]
     Indication: NON-HODGKIN'S LYMPHOMA
     Dosage: 700 MG (CYCLICAL), INTRAVENOUS
     Route: 042
     Dates: start: 20030401
  6. BICALUTAMIDE (BICALUTAMIDE) [Concomitant]
  7. TRIPTORELIN (TRIPTORELIN) [Concomitant]

REACTIONS (5)
  - BONE PAIN [None]
  - MALIGNANT NEOPLASM PROGRESSION [None]
  - METASTASES TO BONE [None]
  - NON-HODGKIN'S LYMPHOMA STAGE IV [None]
  - PROSTATIC SPECIFIC ANTIGEN INCREASED [None]
